FAERS Safety Report 21075689 (Version 1)
Quarter: 2022Q3

REPORT INFORMATION
  Report Type: Spontaneous
  Country: BE (occurrence: BE)
  Receive Date: 20220713
  Receipt Date: 20220713
  Transmission Date: 20221027
  Serious: Yes (Other)
  Sender: FDA-Public Use
  Company Number: BE-SA-SAC20220711000312

PATIENT
  Sex: Male

DRUGS (1)
  1. ENOXAPARIN SODIUM [Suspect]
     Active Substance: ENOXAPARIN SODIUM
     Dosage: UNK UNK, BID

REACTIONS (4)
  - Monoplegia [Unknown]
  - Sensory loss [Unknown]
  - Haematoma [Unknown]
  - Limb operation [Unknown]

NARRATIVE: CASE EVENT DATE: 20220101
